FAERS Safety Report 5811844-3 (Version None)
Quarter: 2008Q3

REPORT INFORMATION
  Report Type: 
  Country: None (occurrence: None)
  Receive Date: 20080716
  Receipt Date: 20080708
  Transmission Date: 20090109
  Serious: Yes (Hospitalization)
  Sender: FDA-Public Use
  Company Number: CA-BRISTOL-MYERS SQUIBB COMPANY-14253843

PATIENT
  Age: 57 Year
  Sex: Male

DRUGS (4)
  1. BMS753493 [Suspect]
     Indication: NEOPLASM MALIGNANT
     Dosage: INITIATED ON 05MAY2008.
     Route: 042
     Dates: start: 20080530, end: 20080530
  2. CYCLOPHOSPHAMIDE [Suspect]
  3. DOXORUBICIN HCL [Suspect]
  4. ETOPOSIDE [Suspect]

REACTIONS (1)
  - FEBRILE NEUTROPENIA [None]
